FAERS Safety Report 14099781 (Version 1)
Quarter: 2017Q4

REPORT INFORMATION
  Report Type: Spontaneous
  Country: CH (occurrence: CH)
  Receive Date: 20171017
  Receipt Date: 20171017
  Transmission Date: 20180321
  Serious: Yes (Other)
  Sender: FDA-Public Use
  Company Number: CH-TEVA-815890ISR

PATIENT
  Age: 73 Year
  Sex: Male
  Weight: 75 kg

DRUGS (11)
  1. FLUCONAZOL [Concomitant]
     Active Substance: FLUCONAZOLE
     Indication: ABDOMINAL ABSCESS
     Route: 048
     Dates: start: 20170926, end: 20170926
  2. FLAGYL [Concomitant]
     Active Substance: METRONIDAZOLE\METRONIDAZOLE HYDROCHLORIDE
     Indication: ABDOMINAL ABSCESS
     Route: 048
     Dates: start: 20170926, end: 20170926
  3. LYRICA [Concomitant]
     Active Substance: PREGABALIN
     Route: 048
  4. ZANTAC [Concomitant]
     Active Substance: RANITIDINE HYDROCHLORIDE
     Route: 048
  5. CIPROFLOXACIN. [Concomitant]
     Active Substance: CIPROFLOXACIN
     Indication: ABDOMINAL ABSCESS
     Route: 048
     Dates: start: 20170926, end: 20170926
  6. PIPERACILIN/TAZOBACTAM [Concomitant]
     Active Substance: PIPERACILLIN SODIUM\TAZOBACTAM SODIUM
     Indication: ABDOMINAL ABSCESS
     Route: 040
     Dates: start: 20170926, end: 20170927
  7. VANCOCIN [Suspect]
     Active Substance: VANCOMYCIN HYDROCHLORIDE
     Indication: BACTERIAL ABDOMINAL INFECTION
     Route: 041
     Dates: start: 20170926, end: 20170926
  8. CANCIDAS [Concomitant]
     Active Substance: CASPOFUNGIN ACETATE
     Indication: ABDOMINAL ABSCESS
     Route: 040
     Dates: start: 20170925
  9. CLOPIDOGREL [Concomitant]
     Active Substance: CLOPIDOGREL BISULFATE
     Route: 048
  10. IMODIUM [Concomitant]
     Active Substance: LOPERAMIDE HYDROCHLORIDE
     Route: 048
  11. OXYCODONE [Concomitant]
     Active Substance: OXYCODONE
     Route: 048

REACTIONS (4)
  - Hypotension [Recovered/Resolved]
  - Anaphylactoid reaction [Recovered/Resolved]
  - Red man syndrome [Recovered/Resolved]
  - Altered state of consciousness [Recovered/Resolved]

NARRATIVE: CASE EVENT DATE: 20170926
